FAERS Safety Report 23425134 (Version 1)
Quarter: 2024Q1

REPORT INFORMATION
  Report Type: Spontaneous
  Country: CA (occurrence: CA)
  Receive Date: 20240121
  Receipt Date: 20240121
  Transmission Date: 20240409
  Serious: Yes (Hospitalization, Other)
  Sender: FDA-Public Use
  Company Number: CA-BAXTER-2024BAX010891

PATIENT
  Age: 48 Year
  Sex: Female
  Weight: 77 kg

DRUGS (33)
  1. DOXORUBICIN [Suspect]
     Active Substance: DOXORUBICIN
     Indication: Fallopian tube cancer
     Dosage: 40 MILLIGRAM/SQ. METER, CYCLE 1 DAY 1 (C1D1)
     Route: 042
     Dates: start: 20230406
  2. DOXORUBICIN [Suspect]
     Active Substance: DOXORUBICIN
     Dosage: 40 MILLIGRAM/SQ. METER, CYCLE 2 DAY 1 (C2D1)
     Route: 042
     Dates: start: 20230518
  3. POLYETHYLENE GLYCOL [Concomitant]
     Active Substance: POLYETHYLENE GLYCOL
     Indication: Constipation
     Dosage: UNK
     Route: 065
     Dates: start: 20230627
  4. VITAMIN D [Concomitant]
     Active Substance: VITAMIN D NOS
     Indication: Abdominal pain
     Dosage: UNK
     Route: 065
     Dates: start: 20230817
  5. ACETAMINOPHEN [Concomitant]
     Active Substance: ACETAMINOPHEN
     Indication: Abdominal pain
     Dosage: UNK
     Route: 065
     Dates: start: 20230820
  6. MORPHINE [Concomitant]
     Active Substance: MORPHINE
     Indication: Abdominal pain
     Dosage: UNK
     Route: 065
     Dates: start: 20230309
  7. METHADONE [Concomitant]
     Active Substance: METHADONE HYDROCHLORIDE
     Indication: Abdominal pain
     Dosage: UNK
     Route: 065
     Dates: start: 20230309
  8. PANTOPRAZOLE [Concomitant]
     Active Substance: PANTOPRAZOLE
     Indication: Abdominal pain upper
     Dosage: UNK
     Route: 065
     Dates: start: 20230314
  9. METOCLOPRAMIDE [Concomitant]
     Active Substance: METOCLOPRAMIDE
     Indication: Prophylaxis of nausea and vomiting
     Dosage: UNK
     Route: 065
     Dates: start: 20230314
  10. KADIAN [Concomitant]
     Active Substance: MORPHINE SULFATE
     Indication: Abdominal pain
     Dosage: UNK
     Route: 065
     Dates: start: 20230309, end: 20230613
  11. PROCHLORPERAZINE [Concomitant]
     Active Substance: PROCHLORPERAZINE
     Indication: Prophylaxis of nausea and vomiting
     Dosage: UNK
     Route: 065
     Dates: start: 20230324
  12. PROCHLORPERAZINE [Concomitant]
     Active Substance: PROCHLORPERAZINE
     Indication: Premedication
  13. SYSTANE (HYPROMELLOSE 2910 (4000 MPA.S)) [Concomitant]
     Active Substance: HYPROMELLOSE 2910 (4000 MPA.S)
     Indication: Dry eye
     Dosage: UNK
     Route: 065
     Dates: start: 20230324
  14. MAGNESIUM GLUCONATE [Concomitant]
     Active Substance: MAGNESIUM GLUCONATE
     Indication: Hypomagnesaemia
     Dosage: UNK (STOP DATE: MAY-2023)
     Route: 065
     Dates: start: 20230420
  15. MAGNESIUM GLUCONATE [Concomitant]
     Active Substance: MAGNESIUM GLUCONATE
     Dosage: UNK
     Route: 065
     Dates: start: 20230501, end: 20230525
  16. ANCEF [Concomitant]
     Active Substance: CEFAZOLIN SODIUM
     Indication: Infection prophylaxis
     Dosage: UNK
     Route: 065
     Dates: start: 20230502, end: 20230502
  17. FLAGYL [Concomitant]
     Active Substance: METRONIDAZOLE\METRONIDAZOLE HYDROCHLORIDE
     Indication: Infection prophylaxis
     Dosage: UNK
     Route: 065
     Dates: start: 20230502, end: 20230502
  18. FENTANYL [Concomitant]
     Active Substance: FENTANYL\FENTANYL CITRATE
     Indication: Colonoscopy
     Dosage: UNK
     Route: 065
     Dates: start: 20230502, end: 20230502
  19. MIDAZOLAM [Concomitant]
     Active Substance: MIDAZOLAM
     Indication: Colonoscopy
     Dosage: UNK
     Route: 065
     Dates: start: 20230502, end: 20230502
  20. FLEET ENEMA [Concomitant]
     Active Substance: SODIUM PHOSPHATE, DIBASIC\SODIUM PHOSPHATE, MONOBASIC
     Indication: Large intestinal obstruction
     Dosage: UNK
     Route: 065
     Dates: start: 20230501, end: 20230502
  21. MAGNESIUM SULFATE [Concomitant]
     Active Substance: MAGNESIUM SULFATE\MAGNESIUM SULFATE HEPTAHYDRATE
     Indication: Hypomagnesaemia
     Dosage: UNK
     Route: 065
     Dates: start: 20230501, end: 20230519
  22. ONDANSETRON [Concomitant]
     Active Substance: ONDANSETRON
     Indication: Large intestinal obstruction
     Dosage: UNK
     Route: 065
     Dates: start: 20230501, end: 20230517
  23. CELEBREX [Concomitant]
     Active Substance: CELECOXIB
     Indication: Pain management
     Dosage: UNK
     Route: 065
     Dates: start: 20230502, end: 20230508
  24. DULOXETINE [Concomitant]
     Active Substance: DULOXETINE
     Indication: Anxiety
     Dosage: UNK
     Route: 065
     Dates: start: 20230417
  25. DALTEPARIN [Concomitant]
     Active Substance: DALTEPARIN
     Indication: Thrombosis prophylaxis
     Dosage: UNK
     Route: 065
     Dates: start: 20230507
  26. PIPERACILLIN AND TAZOBACTAM [Concomitant]
     Active Substance: PIPERACILLIN SODIUM\TAZOBACTAM SODIUM
     Indication: Sepsis
     Dosage: UNK
     Route: 065
     Dates: start: 20230515, end: 20230519
  27. TYLENOL [Concomitant]
     Active Substance: ACETAMINOPHEN
     Indication: Sepsis
     Dosage: UNK
     Route: 065
     Dates: start: 20230515, end: 20230520
  28. MAGNESIUM GLUCONATE [Concomitant]
     Active Substance: MAGNESIUM GLUCONATE
     Indication: Hypomagnesaemia
     Dosage: UNK (STOP DATE: MAY-2023)
     Route: 065
     Dates: start: 20230420
  29. MAGNESIUM GLUCONATE [Concomitant]
     Active Substance: MAGNESIUM GLUCONATE
     Dosage: UNK
     Route: 065
     Dates: start: 20230517, end: 20230520
  30. CEFTRIAXONE [Concomitant]
     Active Substance: CEFTRIAXONE\CEFTRIAXONE SODIUM
     Indication: Sepsis
     Dosage: UNK
     Route: 065
     Dates: start: 20230519, end: 20230520
  31. NORVASC [Concomitant]
     Active Substance: AMLODIPINE BESYLATE
     Indication: Hypertension
     Dosage: UNK
     Route: 065
     Dates: start: 20230519, end: 20230520
  32. AMOXICILLIN [Concomitant]
     Active Substance: AMOXICILLIN
     Indication: Bacteraemia
     Dosage: UNK
     Route: 065
     Dates: start: 20230520, end: 20230522
  33. HUMAN RED BLOOD CELL [Concomitant]
     Active Substance: HUMAN RED BLOOD CELL
     Dosage: 2 UNITS
     Route: 065
     Dates: start: 20230328

REACTIONS (10)
  - Large intestinal obstruction [Unknown]
  - Palpitations [Recovered/Resolved]
  - Sepsis [Recovered/Resolved]
  - Chest pain [Unknown]
  - Sinus tachycardia [Unknown]
  - Heart rate increased [Unknown]
  - Vertebrobasilar insufficiency [Unknown]
  - Disease progression [Unknown]
  - Pleural effusion [Unknown]
  - Bacteraemia [Recovered/Resolved]

NARRATIVE: CASE EVENT DATE: 20230501
